FAERS Safety Report 8050554-1 (Version None)
Quarter: 2012Q1

REPORT INFORMATION
  Report Type: 
  Country: None (occurrence: None)
  Receive Date: 20120105
  Receipt Date: 20111222
  Transmission Date: 20120608
  Serious: Yes (Other)
  Sender: FDA-Public Use
  Company Number: 2011030635

PATIENT
  Age: 65 Year
  Sex: Female
  Weight: 68.0396 kg

DRUGS (9)
  1. CHLORDIAZEPOAMITRIPTYL (CHLORDIAZEPOXIDE W/AMITRIPTYLINE) [Concomitant]
  2. METHOTREXATE (METHOREXAE) [Concomitant]
  3. VERAPAMIL [Concomitant]
  4. FIORINAL/CODEINE (FIORINAL-C 1/4 /00141301/) [Concomitant]
  5. ACETAMINOPHEN [Concomitant]
  6. MULTIVITAMIN (MULTIVITAMIN /00831701/) [Concomitant]
  7. FOLIC ACID [Concomitant]
  8. MELOXICAM [Concomitant]
  9. HIZENTRA [Suspect]
     Indication: IMMUNODEFICIENCY COMMON VARIABLE
     Dosage: 12 G 1X/WEEK, 60 ML ON FOUR TO FIVE SITES OVER ONE HOUR SUBCUTANEOUS
     Route: 058
     Dates: start: 20111220

REACTIONS (7)
  - VERTIGO [None]
  - HEADACHE [None]
  - ABDOMINAL PAIN [None]
  - MIGRAINE [None]
  - BONE PAIN [None]
  - MALAISE [None]
  - ARTHRITIS [None]
